FAERS Safety Report 6631635-3 (Version None)
Quarter: 2010Q1

REPORT INFORMATION
  Report Type: 
  Country: None (occurrence: None)
  Receive Date: 20100312
  Receipt Date: 20100309
  Transmission Date: 20100710
  Serious: Yes (Death, Hospitalization)
  Sender: FDA-Public Use
  Company Number: FR-SANOFI-AVENTIS-2010SA013141

PATIENT
  Age: 72 Year
  Sex: Female
  Weight: 75 kg

DRUGS (4)
  1. LOVENOX [Suspect]
     Indication: PULMONARY EMBOLISM
     Route: 058
     Dates: start: 20091217, end: 20091218
  2. DABIGATRAN ETEXILATE [Suspect]
     Indication: THROMBOSIS PROPHYLAXIS
     Route: 048
     Dates: start: 20091215, end: 20091217
  3. ANTIHYPERTENSIVES [Concomitant]
     Route: 065
  4. AMINOPHYLLINE [Concomitant]
     Indication: ASTHMA
     Route: 042

REACTIONS (11)
  - ABDOMINAL SEPSIS [None]
  - ACTIVATED PARTIAL THROMBOPLASTIN TIME PROLONGED [None]
  - ANAEMIA [None]
  - COAGULOPATHY [None]
  - DYSPNOEA [None]
  - GASTROINTESTINAL ISCHAEMIA [None]
  - HYPOTENSION [None]
  - HYPOVOLAEMIC SHOCK [None]
  - OLIGURIA [None]
  - PROTHROMBIN LEVEL DECREASED [None]
  - TACHYCARDIA [None]
